FAERS Safety Report 20812503 (Version 1)
Quarter: 2022Q2

REPORT INFORMATION
  Report Type: Spontaneous
  Country: DE (occurrence: DE)
  Receive Date: 20220511
  Receipt Date: 20220511
  Transmission Date: 20220721
  Serious: Yes (Other)
  Sender: FDA-Public Use
  Company Number: None

PATIENT
  Sex: Male
  Weight: 55 kg

DRUGS (19)
  1. GEMCITABINE [Suspect]
     Active Substance: GEMCITABINE
     Indication: Diffuse large B-cell lymphoma
     Dates: start: 201808, end: 201811
  2. MELPHALAN [Suspect]
     Active Substance: MELPHALAN
     Indication: Diffuse large B-cell lymphoma
     Dates: start: 201812
  3. VINCRISTINE [Suspect]
     Active Substance: VINCRISTINE
     Indication: Diffuse large B-cell lymphoma
     Dates: start: 201705, end: 201709
  4. ETOPOSIDE [Suspect]
     Active Substance: ETOPOSIDE
     Indication: Diffuse large B-cell lymphoma
     Dates: start: 201606, end: 201707
  5. ETOPOSIDE [Suspect]
     Active Substance: ETOPOSIDE
     Dosage: FIFTH LINE WITH LEAM AS WELL AS ALLOGENEIC STEM CELL TRANSPLANTATION, PROGRESSION OF DISEASE.
     Dates: start: 201812
  6. CYTARABINE [Suspect]
     Active Substance: CYTARABINE
     Indication: Diffuse large B-cell lymphoma
     Dates: start: 201807
  7. CYTARABINE [Suspect]
     Active Substance: CYTARABINE
     Dosage: FIFTH LINE WITH LEAM AS WELL AS ALLOGENEIC STEM CELL TRANSPLANTATION, PROGRESSION OF DISEASE.
     Dates: start: 201812
  8. PREDNISONE [Suspect]
     Active Substance: PREDNISONE
     Indication: Diffuse large B-cell lymphoma
     Dates: start: 201705, end: 201709
  9. LOMUSTINE [Suspect]
     Active Substance: LOMUSTINE
     Indication: Diffuse large B-cell lymphoma
     Dates: start: 201812
  10. IFOSFAMIDE [Suspect]
     Active Substance: IFOSFAMIDE
     Indication: Diffuse large B-cell lymphoma
     Dates: start: 201606, end: 201707
  11. CYCLOPHOSPHAMIDE [Suspect]
     Active Substance: CYCLOPHOSPHAMIDE
     Indication: Diffuse large B-cell lymphoma
     Dates: start: 201705, end: 201709
  12. DEXAMETHASONE [Suspect]
     Active Substance: DEXAMETHASONE
     Indication: Diffuse large B-cell lymphoma
     Dates: start: 201807
  13. CARBOPLATIN [Suspect]
     Active Substance: CARBOPLATIN
     Indication: Diffuse large B-cell lymphoma
     Dates: start: 201606, end: 201707
  14. CISPLATIN [Suspect]
     Active Substance: CISPLATIN
     Indication: Diffuse large B-cell lymphoma
     Dates: start: 201807
  15. RITUXIMAB [Suspect]
     Active Substance: RITUXIMAB
     Indication: Diffuse large B-cell lymphoma
     Dates: start: 201705, end: 201709
  16. RITUXIMAB [Suspect]
     Active Substance: RITUXIMAB
     Dosage: THIRD LINE WITH RITUXIMAB AND DHAP FOR ONE CYCLE, DIVERGENT.
     Dates: start: 201807
  17. RITUXIMAB [Suspect]
     Active Substance: RITUXIMAB
     Dosage: SECOND LINE WITH RITUXIMAB AND ICE (IFOSFAMIDE, CARBOPLATIN, ETOPOSIDE) FOR TWO CYCLES,
     Dates: start: 201606, end: 201707
  18. DOXORUBICIN [Suspect]
     Active Substance: DOXORUBICIN
     Indication: Diffuse large B-cell lymphoma
     Dates: start: 201705, end: 201709
  19. OXALIPLATIN [Suspect]
     Active Substance: OXALIPLATIN
     Indication: Diffuse large B-cell lymphoma
     Dates: start: 201808, end: 201811

REACTIONS (1)
  - Graft versus host disease [Unknown]
